FAERS Safety Report 21963208 (Version 1)
Quarter: 2023Q1

REPORT INFORMATION
  Report Type: Spontaneous
  Country: US (occurrence: None)
  Receive Date: 20230205
  Receipt Date: 20230205
  Transmission Date: 20230417
  Serious: No
  Sender: FDA-Public Use
  Company Number: None

PATIENT
  Age: 30 Year
  Sex: Female

DRUGS (1)
  1. METHYLPHENIDATE [Suspect]
     Active Substance: METHYLPHENIDATE
     Indication: Attention deficit hyperactivity disorder
     Dosage: 30 TABLETS ORAL?
     Route: 048
     Dates: start: 20230203

REACTIONS (6)
  - Product substitution issue [None]
  - Headache [None]
  - Dry mouth [None]
  - Fatigue [None]
  - Agitation [None]
  - Dyspepsia [None]

NARRATIVE: CASE EVENT DATE: 20230205
